FAERS Safety Report 10736008 (Version 1)
Quarter: 2015Q1

REPORT INFORMATION
  Report Type: Spontaneous
  Country: DE (occurrence: None)
  Receive Date: 20150121
  Receipt Date: 20150121
  Transmission Date: 20150721
  Serious: Yes (Other)
  Sender: FDA-Public Use
  Company Number: FK201500267

PATIENT
  Age: 76 Year
  Sex: Male

DRUGS (4)
  1. ACE INHIBITOR (ACE INHIBITORS) [Concomitant]
  2. STATIN (NYSTATIN) [Concomitant]
  3. BETA BLOCKING AGENTS (BETA BLOCKING AGENTS) [Concomitant]
  4. PROPOFOL. [Suspect]
     Active Substance: PROPOFOL
     Indication: ENDOSCOPY
     Dosage: INTRAVENOUS (NOT OTHERWISE SPECIFIED)?
     Route: 042

REACTIONS (3)
  - Atrioventricular block complete [None]
  - Myocardial infarction [None]
  - Atrial fibrillation [None]
